FAERS Safety Report 7363611 (Version 2)
Quarter: 2012Q4

REPORT INFORMATION
  Report Type: 
  Country: FR (occurrence: FR)
  Receive Date: 20100422
  Receipt Date: 20120917
  Transmission Date: 20130627
  Serious: Yes (Death, Life-Threatening, Hospitalization, Other)
  Sender: FDA-Public Use
  Company Number: FR-ELI_LILLY_AND_COMPANY-FR201004004931

PATIENT
  Age: 52 Year
  Sex: Male

DRUGS (1)
  1. GEMZAR [Suspect]
     Indication: PANCREATIC CARCINOMA
     Dosage: UNK, unknown
     Route: 042
     Dates: start: 200802, end: 20091012

REACTIONS (8)
  - Neoplasm progression [Fatal]
  - Cardiac failure acute [Not Recovered/Not Resolved]
  - Circulatory collapse [Not Recovered/Not Resolved]
  - Chronic obstructive pulmonary disease [Unknown]
  - Pneumocystis jiroveci pneumonia [Unknown]
  - Hypertensive crisis [Unknown]
  - Pulmonary oedema [Unknown]
  - Inflammation [Unknown]
